FAERS Safety Report 15136080 (Version 1)
Quarter: 2018Q3

REPORT INFORMATION
  Report Type: Spontaneous
  Country: US (occurrence: US)
  Receive Date: 20180617
  Receipt Date: 20180617
  Transmission Date: 20181010
  Serious: No
  Sender: FDA-Public Use
  Company Number: None

PATIENT
  Age: 65 Year
  Sex: Female

DRUGS (1)
  1. AZATHIOPRINE TAB 50MG [Suspect]
     Active Substance: AZATHIOPRINE
     Dates: start: 20170526, end: 20180617

REACTIONS (1)
  - Off label use [None]

NARRATIVE: CASE EVENT DATE: 20180617
